FAERS Safety Report 9017075 (Version 1)
Quarter: 2013Q1

REPORT INFORMATION
  Report Type: Spontaneous
  Country: MX (occurrence: MX)
  Receive Date: 20130117
  Receipt Date: 20130117
  Transmission Date: 20140127
  Serious: Yes (Hospitalization)
  Sender: FDA-Public Use
  Company Number: PHHY2013MX004312

PATIENT
  Age: 71 Year
  Sex: Female

DRUGS (2)
  1. DIOVAN [Suspect]
     Indication: HYPERTENSION
     Dosage: 2 DF (80MG), UNK
     Route: 048
     Dates: start: 201210
  2. DRONEDARONE [Concomitant]
     Indication: TACHYCARDIA
     Dosage: 0.5 DF, BID
     Dates: start: 201208

REACTIONS (4)
  - Abdominal discomfort [Unknown]
  - Gastritis [Unknown]
  - Colitis [Unknown]
  - Diarrhoea [Not Recovered/Not Resolved]
